FAERS Safety Report 25539434 (Version 1)
Quarter: 2025Q3

REPORT INFORMATION
  Report Type: Spontaneous
  Country: US (occurrence: None)
  Receive Date: 20250710
  Receipt Date: 20250710
  Transmission Date: 20251020
  Serious: Yes (Hospitalization)
  Sender: FDA-CTU
  Company Number: None

PATIENT
  Sex: Female

DRUGS (2)
  1. SILDENAFIL [Suspect]
     Active Substance: SILDENAFIL
     Indication: Pulmonary hypertension
     Dosage: FREQUENCY : 3 TIMES A DAY;?
     Route: 048
     Dates: start: 20250116
  2. REMODULIN [Suspect]
     Active Substance: TREPROSTINIL

REACTIONS (11)
  - Syncope [None]
  - Oxygen saturation decreased [None]
  - Blood pressure increased [None]
  - Chest pain [None]
  - Fatigue [None]
  - Dizziness [None]
  - Peripheral swelling [None]
  - Peripheral swelling [None]
  - Joint swelling [None]
  - Abdominal distension [None]
  - Dyspnoea exertional [None]
